FAERS Safety Report 8289984-1 (Version None)
Quarter: 2012Q2

REPORT INFORMATION
  Report Type: 
  Country: None (occurrence: None)
  Receive Date: 20120417
  Receipt Date: 20120405
  Transmission Date: 20120825
  Serious: Yes (Other)
  Sender: FDA-Public Use
  Company Number: US-CELGENEUS-163-21880-10122373

PATIENT

DRUGS (7)
  1. PROTON PUMP INHIBITOR [Concomitant]
     Route: 065
  2. DEXAMETHASONE [Suspect]
     Indication: MULTIPLE MYELOMA
     Dosage: 40 MILLIGRAM
     Route: 048
  3. NEUPOGEN [Concomitant]
     Route: 065
  4. REVLIMID [Suspect]
     Indication: MULTIPLE MYELOMA
     Dosage: 5-10 MG
     Route: 048
  5. H2 BLOCKER [Concomitant]
     Route: 065
  6. BENDAMUSTINE [Suspect]
     Indication: MULTIPLE MYELOMA
     Dosage: 75/100 MG/M2
     Route: 041
  7. ASPIRIN [Concomitant]
     Dosage: 325 MILLIGRAM
     Route: 065

REACTIONS (13)
  - ANAEMIA [None]
  - LEUKOPENIA [None]
  - HYPERGLYCAEMIA [None]
  - DISEASE PROGRESSION [None]
  - HYPOCALCAEMIA [None]
  - NAUSEA [None]
  - ELECTROCARDIOGRAM QT PROLONGED [None]
  - THROMBOCYTOPENIA [None]
  - FEBRILE NEUTROPENIA [None]
  - FATIGUE [None]
  - DIARRHOEA [None]
  - PNEUMONIA [None]
  - NEUTROPENIA [None]
